FAERS Safety Report 17229774 (Version 5)
Quarter: 2020Q1

REPORT INFORMATION
  Report Type: Report from Study
  Country: US (occurrence: US)
  Receive Date: 20200103
  Receipt Date: 20200303
  Transmission Date: 20200409
  Serious: Yes (Other)
  Sender: FDA-Public Use
  Company Number: NVSC2019US084646

PATIENT
  Sex: Male

DRUGS (1)
  1. ENTRESTO [Suspect]
     Active Substance: SACUBITRIL\VALSARTAN
     Indication: CARDIAC FAILURE
     Dosage: UNK
     Route: 065

REACTIONS (7)
  - Depression [Unknown]
  - Decreased appetite [Unknown]
  - Arthritis [Unknown]
  - Spondylitis [Unknown]
  - Arthropathy [Unknown]
  - Weight decreased [Unknown]
  - Arteriosclerosis [Unknown]
